FAERS Safety Report 7006061-8 (Version None)
Quarter: 2010Q3

REPORT INFORMATION
  Report Type: 
  Country: None (occurrence: None)
  Receive Date: 20100921
  Receipt Date: 20100909
  Transmission Date: 20110219
  Serious: Yes (Other)
  Sender: FDA-Public Use
  Company Number: CO-PFIZER INC-2010114719

PATIENT
  Age: 40 Year
  Sex: Female

DRUGS (5)
  1. MEDROL [Suspect]
     Indication: RHEUMATOID ARTHRITIS
     Dosage: 4 MG, 1X/DAY
     Route: 048
     Dates: start: 19890101
  2. METHOTREXATE [Suspect]
     Indication: RHEUMATOID ARTHRITIS
     Dosage: 2.5 MG, 3 TABLETS PER DAY
     Route: 048
     Dates: start: 19890101
  3. ENBREL [Suspect]
     Indication: RHEUMATOID ARTHRITIS
     Dosage: 50 MG, WEEKLY
     Dates: start: 20100201, end: 20100308
  4. ENBREL [Suspect]
     Dosage: 50 MG, WEEKLY
     Dates: start: 20100301, end: 20100601
  5. IBUPROFEN [Suspect]
     Indication: PAIN
     Dosage: 800 MG, 1X/DAY
     Route: 048
     Dates: start: 20090101

REACTIONS (4)
  - ENDOMETRIOSIS [None]
  - OSTEOPOROSIS [None]
  - VAGINAL DISCHARGE [None]
  - VAGINAL HAEMORRHAGE [None]
